FAERS Safety Report 19019628 (Version 2)
Quarter: 2021Q1

REPORT INFORMATION
  Report Type: Spontaneous
  Country: PH (occurrence: AU)
  Receive Date: 20210317
  Receipt Date: 20210323
  Transmission Date: 20210420
  Serious: Yes (Other)
  Sender: FDA-Public Use
  Company Number: AU-GLAXOSMITHKLINE-AU2021060469

PATIENT
  Age: 85 Year
  Sex: Male

DRUGS (1)
  1. DUODART [Suspect]
     Active Substance: DUTASTERIDE\TAMSULOSIN
     Indication: BENIGN PROSTATIC HYPERPLASIA
     Dosage: 1 DF, QD
     Dates: start: 2020

REACTIONS (9)
  - Rash [Unknown]
  - Visual impairment [Unknown]
  - Eye haemorrhage [Unknown]
  - Dry skin [Unknown]
  - Influenza like illness [Unknown]
  - Symptom recurrence [Not Recovered/Not Resolved]
  - Oropharyngeal pain [Unknown]
  - Nasopharyngitis [Unknown]
  - Intraocular lens implant [Unknown]

NARRATIVE: CASE EVENT DATE: 202009
